FAERS Safety Report 6896947-7 (Version None)
Quarter: 2010Q3

REPORT INFORMATION
  Report Type: 
  Country: None (occurrence: None)
  Receive Date: 20100802
  Receipt Date: 20070424
  Transmission Date: 20110219
  Serious: Yes (Hospitalization, Other)
  Sender: FDA-Public Use
  Company Number: US-PFIZER INC-2006127642

PATIENT
  Sex: Male

DRUGS (4)
  1. LYRICA [Suspect]
     Indication: ARTHRALGIA
     Dates: start: 20061001
  2. NEURONTIN [Suspect]
     Indication: ARTHRALGIA
  3. TEGRETOL [Suspect]
     Indication: ARTHRALGIA
     Dates: start: 20070101
  4. TAMSULOSIN HYDROCHLORIDE [Concomitant]

REACTIONS (7)
  - DIZZINESS [None]
  - DRUG INEFFECTIVE [None]
  - INFECTION [None]
  - INJURY [None]
  - MEMORY IMPAIRMENT [None]
  - PAIN [None]
  - RASH [None]
